FAERS Safety Report 18525145 (Version 1)
Quarter: 2020Q4

REPORT INFORMATION
  Report Type: Spontaneous
  Country: FI (occurrence: FI)
  Receive Date: 20201119
  Receipt Date: 20201119
  Transmission Date: 20210114
  Serious: Yes (Death)
  Sender: FDA-Public Use
  Company Number: FI-009507513-2011FIN009116

PATIENT
  Age: 79 Year
  Sex: Male

DRUGS (3)
  1. CISPLATIN. [Concomitant]
     Active Substance: CISPLATIN
     Indication: LUNG NEOPLASM MALIGNANT
     Dosage: 100,MG,CYCLICAL
     Route: 042
     Dates: start: 20200408, end: 20200520
  2. KEYTRUDA [Suspect]
     Active Substance: PEMBROLIZUMAB
     Indication: LUNG NEOPLASM MALIGNANT
     Dosage: 200,MG,CYCLICAL
     Route: 042
     Dates: start: 20200408, end: 20200520
  3. GEMCITABINE. [Concomitant]
     Active Substance: GEMCITABINE
     Indication: LUNG NEOPLASM MALIGNANT
     Dosage: 1300,MG,CYCLICAL
     Route: 042
     Dates: start: 20200408, end: 20200520

REACTIONS (2)
  - Hepatic enzyme increased [Fatal]
  - Immune-mediated hepatic disorder [Fatal]

NARRATIVE: CASE EVENT DATE: 20200609
